FAERS Safety Report 8113783-4 (Version None)
Quarter: 2012Q1

REPORT INFORMATION
  Report Type: 
  Country: None (occurrence: None)
  Receive Date: 20120203
  Receipt Date: 20120131
  Transmission Date: 20120608
  Serious: Yes (Hospitalization, Other)
  Sender: FDA-Public Use
  Company Number: US-PFIZER INC-2012028113

PATIENT
  Sex: Male

DRUGS (3)
  1. VIAGRA [Suspect]
     Dosage: UNK
  2. CHANTIX [Suspect]
     Dosage: UNK
  3. XANAX [Suspect]
     Dosage: UNK

REACTIONS (9)
  - NIGHTMARE [None]
  - EAR INFECTION [None]
  - ANXIETY [None]
  - INSOMNIA [None]
  - BRONCHITIS CHRONIC [None]
  - ABNORMAL BEHAVIOUR [None]
  - NEPHROLITHIASIS [None]
  - CRYING [None]
  - SUICIDAL IDEATION [None]
